FAERS Safety Report 7888408-3 (Version None)
Quarter: 2011Q4

REPORT INFORMATION
  Report Type: 
  Country: None (occurrence: None)
  Receive Date: 20111101
  Receipt Date: 20111019
  Transmission Date: 20120403
  Serious: Yes (Other)
  Sender: FDA-Public Use
  Company Number: DSJ-2011-22756

PATIENT
  Age: 77 Year
  Sex: Female

DRUGS (4)
  1. BENICAR HCT [Suspect]
     Indication: HYPERTENSION
     Dosage: 40/12.5 MG (1 IN 1 D), ORAL
     Route: 048
     Dates: start: 20110801, end: 20110901
  2. METFORMIN HCL [Concomitant]
  3. MEDICINE FOR OSTEOPOROSIS [Concomitant]
  4. PANTOPRAZOLE (PANTOPRAZOLE) (PANTOPRAZOLE) [Concomitant]

REACTIONS (3)
  - CEREBROVASCULAR ACCIDENT [None]
  - BLOOD PRESSURE INCREASED [None]
  - HYPERCHOLESTEROLAEMIA [None]
